FAERS Safety Report 10680198 (Version 5)
Quarter: 2015Q2

REPORT INFORMATION
  Report Type: Spontaneous
  Country: US (occurrence: US)
  Receive Date: 20141229
  Receipt Date: 20150423
  Transmission Date: 20150821
  Serious: No
  Sender: FDA-Public Use
  Company Number: US-009507513-1110USA03609

PATIENT
  Sex: Male
  Weight: 87.53 kg

DRUGS (1)
  1. PROPECIA [Suspect]
     Active Substance: FINASTERIDE
     Indication: ALOPECIA
     Dosage: 1 MG, UNK
     Route: 048
     Dates: start: 2006, end: 2009

REACTIONS (16)
  - Hyperlipidaemia [Unknown]
  - Palpitations [Unknown]
  - Lipoma [Unknown]
  - Ejaculation disorder [Unknown]
  - Anxiety [Unknown]
  - Sexual dysfunction [Unknown]
  - Depression [Unknown]
  - Sexual dysfunction [Unknown]
  - Headache [Unknown]
  - Ejaculation failure [Unknown]
  - Chest pain [Unknown]
  - Fatigue [Unknown]
  - Back pain [Unknown]
  - Cognitive disorder [Unknown]
  - Erectile dysfunction [Not Recovered/Not Resolved]
  - Libido decreased [Unknown]

NARRATIVE: CASE EVENT DATE: 2008
